FAERS Safety Report 11700995 (Version 2)
Quarter: 2015Q4

REPORT INFORMATION
  Report Type: Spontaneous
  Country: CH (occurrence: CH)
  Receive Date: 20151105
  Receipt Date: 20151113
  Transmission Date: 20160304
  Serious: Yes (Hospitalization, Other)
  Sender: FDA-Public Use
  Company Number: CH-JNJFOC-20151101586

PATIENT
  Age: 3 Decade
  Sex: Male
  Weight: 70 kg

DRUGS (2)
  1. REMICADE [Suspect]
     Active Substance: INFLIXIMAB
     Indication: CROHN^S DISEASE
     Dosage: TOTAL DOSE 400 MG, FREQUEWNCY EVERY 8 OR MORE WEEKS.
     Route: 042
     Dates: start: 20130927, end: 20150601
  2. REMICADE [Suspect]
     Active Substance: INFLIXIMAB
     Indication: COLITIS ULCERATIVE
     Dosage: TOTAL DOSE 400 MG, FREQUEWNCY EVERY 8 OR MORE WEEKS.
     Route: 042
     Dates: start: 20130927, end: 20150601

REACTIONS (4)
  - Hepatic steatosis [Unknown]
  - Drug abuse [Unknown]
  - Hepatocellular carcinoma [Unknown]
  - Colitis ulcerative [Unknown]

NARRATIVE: CASE EVENT DATE: 2015
